FAERS Safety Report 9281479 (Version 1)
Quarter: 2013Q2

REPORT INFORMATION
  Report Type: Spontaneous
  Country: US (occurrence: US)
  Receive Date: 20130509
  Receipt Date: 20130509
  Transmission Date: 20140414
  Serious: No
  Sender: FDA-Public Use
  Company Number: US-PFIZER INC-2013142221

PATIENT
  Sex: 0

DRUGS (1)
  1. LYRICA [Suspect]
     Indication: FACIAL NEURALGIA
     Dosage: 50 MG, 3X/DAY

REACTIONS (1)
  - Weight increased [Unknown]
